FAERS Safety Report 4456860-1 (Version None)
Quarter: 2004Q3

REPORT INFORMATION
  Report Type: 
  Country: None (occurrence: None)
  Receive Date: 20040921
  Receipt Date: 20040913
  Transmission Date: 20050211
  Serious: Yes (Death, Hospitalization, Other)
  Sender: FDA-Public Use
  Company Number: US-JNJFOC-20040903461

PATIENT
  Age: 37 Year
  Sex: Female

DRUGS (4)
  1. TYLENOL [Suspect]
     Indication: SUICIDE ATTEMPT
     Dosage: ORAL
     Route: 048
  2. OPOIDS (OPIOIDS) [Suspect]
     Indication: SUICIDE ATTEMPT
  3. AMPHETAMINE (AMFETAMINE) [Suspect]
     Indication: SUICIDE ATTEMPT
  4. DIPHENHYDRAMINE HCL [Suspect]
     Indication: SUICIDE ATTEMPT

REACTIONS (9)
  - ALANINE AMINOTRANSFERASE INCREASED [None]
  - ASPARTATE AMINOTRANSFERASE INCREASED [None]
  - BLOOD CREATININE INCREASED [None]
  - DRUG ABUSER [None]
  - DRUG SCREEN POSITIVE [None]
  - HYPOGLYCAEMIA [None]
  - INTERNATIONAL NORMALISED RATIO DECREASED [None]
  - METABOLIC ACIDOSIS [None]
  - PROTHROMBIN TIME PROLONGED [None]
